FAERS Safety Report 14855929 (Version 2)
Quarter: 2019Q2

REPORT INFORMATION
  Report Type: Report from Study
  Country: US (occurrence: US)
  Receive Date: 20180507
  Receipt Date: 20190531
  Transmission Date: 20190711
  Serious: Yes (Hospitalization, Other)
  Sender: FDA-Public Use
  Company Number: US-ACTELION-A-NJ2018-170054

PATIENT
  Age: 60 Year
  Sex: Female

DRUGS (4)
  1. TRACLEER [Suspect]
     Active Substance: BOSENTAN
     Indication: PULMONARY ARTERIAL HYPERTENSION
     Dosage: 125 MG, BID
     Route: 048
  2. ELIQUIS [Concomitant]
     Active Substance: APIXABAN
  3. AMLODIPINE [Concomitant]
     Active Substance: AMLODIPINE BESYLATE
  4. WARFARIN [Concomitant]
     Active Substance: WARFARIN

REACTIONS (8)
  - Product dose omission [Unknown]
  - Dysentery [Unknown]
  - Fatigue [Unknown]
  - Dehydration [Unknown]
  - Anaemia [Unknown]
  - Central venous catheterisation [Unknown]
  - Neoplasm malignant [Unknown]
  - Nausea [Unknown]

NARRATIVE: CASE EVENT DATE: 20180301
